FAERS Safety Report 7418802-6 (Version None)
Quarter: 2011Q2

REPORT INFORMATION
  Report Type: 
  Country: None (occurrence: None)
  Receive Date: 20110408
  Receipt Date: 20110326
  Transmission Date: 20111010
  Serious: Yes (Hospitalization, Other)
  Sender: FDA-Public Use
  Company Number: 1000019325

PATIENT
  Age: 39 Year
  Sex: Female
  Weight: 87 kg

DRUGS (7)
  1. ESCITALOPRAM OXALATE [Suspect]
     Indication: PANIC ATTACK
     Dosage: 5 MG (5 MG,1 IN 1 D),ORAL ; 5 MG (5 MG,1 IN 1 D),ORAL
     Route: 048
     Dates: start: 20090525, end: 20090530
  2. ESCITALOPRAM OXALATE [Suspect]
     Indication: DEPRESSION
     Dosage: 5 MG (5 MG,1 IN 1 D),ORAL ; 5 MG (5 MG,1 IN 1 D),ORAL
     Route: 048
     Dates: start: 20090525, end: 20090530
  3. ESCITALOPRAM OXALATE [Suspect]
     Indication: PANIC ATTACK
     Dosage: 5 MG (5 MG,1 IN 1 D),ORAL ; 5 MG (5 MG,1 IN 1 D),ORAL
     Route: 048
     Dates: start: 20110310
  4. ESCITALOPRAM OXALATE [Suspect]
     Indication: DEPRESSION
     Dosage: 5 MG (5 MG,1 IN 1 D),ORAL ; 5 MG (5 MG,1 IN 1 D),ORAL
     Route: 048
     Dates: start: 20110310
  5. ESCITALOPRAM OXALATE [Suspect]
     Indication: PANIC ATTACK
     Dosage: 10 MG (10 MG,1 IN 1 D),ORAL
     Route: 048
     Dates: start: 20090531, end: 20110309
  6. ESCITALOPRAM OXALATE [Suspect]
     Indication: DEPRESSION
     Dosage: 10 MG (10 MG,1 IN 1 D),ORAL
     Route: 048
     Dates: start: 20090531, end: 20110309
  7. VIANI (SALMETEROL, FLUTICASONE PROPIONATE) (INHALANT) (SALMETEROL, FLU [Concomitant]

REACTIONS (13)
  - BLOOD FOLATE INCREASED [None]
  - PLATELET COUNT INCREASED [None]
  - BLOOD CREATININE INCREASED [None]
  - BLOOD UREA INCREASED [None]
  - C-REACTIVE PROTEIN INCREASED [None]
  - BLOOD CREATINE PHOSPHOKINASE INCREASED [None]
  - FOOD ALLERGY [None]
  - BLOOD CREATINE PHOSPHOKINASE MB INCREASED [None]
  - WHITE BLOOD CELL COUNT INCREASED [None]
  - ELECTROENCEPHALOGRAM ABNORMAL [None]
  - CONVULSION [None]
  - BLOOD FIBRINOGEN INCREASED [None]
  - MYOGLOBIN BLOOD INCREASED [None]
